FAERS Safety Report 22942881 (Version 4)
Quarter: 2023Q4

REPORT INFORMATION
  Report Type: Report from Study
  Country: CN (occurrence: None)
  Receive Date: 20230914
  Receipt Date: 20231109
  Transmission Date: 20240110
  Serious: Yes (Other)
  Sender: FDA-Public Use
  Company Number: 2023A205662

PATIENT
  Age: 778 Month
  Sex: Male
  Weight: 55 kg

DRUGS (5)
  1. DURVALUMAB [Suspect]
     Active Substance: DURVALUMAB
     Indication: Hepatocellular carcinoma
     Route: 042
     Dates: start: 20230713, end: 20230713
  2. DURVALUMAB [Suspect]
     Active Substance: DURVALUMAB
     Indication: Hepatocellular carcinoma
     Route: 042
     Dates: start: 20230810, end: 20230810
  3. DURVALUMAB [Suspect]
     Active Substance: DURVALUMAB
     Indication: Hepatocellular carcinoma
     Dosage: 1500 MG Q4W
     Route: 042
     Dates: start: 20230615, end: 20230615
  4. TREMELIMUMAB [Suspect]
     Active Substance: TREMELIMUMAB
     Indication: Hepatocellular carcinoma
     Dosage: 1500 MG Q4W
     Route: 042
     Dates: start: 20230615, end: 20230615
  5. ENTECAVIR DISPERSIBLE TABLET [Concomitant]
     Indication: Hepatitis B DNA decreased
     Dosage: 0.5 MG DAILY
     Route: 048
     Dates: start: 20230613

REACTIONS (1)
  - Drug-induced liver injury [Recovered/Resolved]

NARRATIVE: CASE EVENT DATE: 20230906
